FAERS Safety Report 7639478-9 (Version None)
Quarter: 2011Q3

REPORT INFORMATION
  Report Type: 
  Country: None (occurrence: None)
  Receive Date: 20110727
  Receipt Date: 20110720
  Transmission Date: 20111222
  Serious: Yes (Hospitalization)
  Sender: FDA-Public Use
  Company Number: US-GLAXOSMITHKLINE-A0938227A

PATIENT
  Age: 54 Year
  Sex: Female

DRUGS (2)
  1. LETAIRIS [Concomitant]
  2. FLOLAN [Suspect]
     Indication: PORTAL HYPERTENSION
     Route: 065
     Dates: start: 20101030

REACTIONS (1)
  - BREAST CANCER [None]
